FAERS Safety Report 20244131 (Version 1)
Quarter: 2021Q4

REPORT INFORMATION
  Report Type: Spontaneous
  Country: US (occurrence: US)
  Receive Date: 20211229
  Receipt Date: 20211229
  Transmission Date: 20220303
  Serious: Yes (Hospitalization, Other)
  Sender: FDA-Public Use
  Company Number: US-STRIDES ARCOLAB LIMITED-2021SP031573

PATIENT
  Sex: Male

DRUGS (7)
  1. PREDNISOLONE [Suspect]
     Active Substance: PREDNISOLONE
     Indication: Renal transplant
     Dosage: UNK
     Route: 065
  2. PREDNISOLONE [Suspect]
     Active Substance: PREDNISOLONE
     Dosage: 40 MILLIGRAM PER DAY, PRIOR TO RESUMING PEMBROLIZUMAB TO MITIGATE THE CHANCE OF WORSENING RENAL REJE
     Route: 065
  3. PREDNISOLONE [Suspect]
     Active Substance: PREDNISOLONE
     Dosage: 20 MILLIGRAM PER DAY, PRIOR TO RESUMING PEMBROLIZUMAB TO MITIGATE THE CHANCE OF WORSENING RENAL REJE
     Route: 065
  4. PREDNISOLONE [Suspect]
     Active Substance: PREDNISOLONE
     Dosage: 7.5 MILLIGRAM PER DAY, PRIOR TO RESUMING PEMBROLIZUMAB TO MITIGATE THE CHANCE OF WORSENING RENAL REJ
     Route: 065
  5. MYCOPHENOLATE MOFETIL [Suspect]
     Active Substance: MYCOPHENOLATE MOFETIL
     Indication: Renal transplant
     Dosage: UNK
     Route: 065
  6. TACROLIMUS [Suspect]
     Active Substance: TACROLIMUS
     Indication: Renal transplant
     Dosage: UNK
     Route: 065
  7. SIROLIMUS [Suspect]
     Active Substance: SIROLIMUS
     Indication: Renal transplant
     Dosage: UNK
     Route: 065

REACTIONS (2)
  - Skin squamous cell carcinoma metastatic [Recovered/Resolved]
  - Kidney transplant rejection [Recovered/Resolved]
